FAERS Safety Report 16378058 (Version 3)
Quarter: 2019Q2

REPORT INFORMATION
  Report Type: Report from Study
  Country: CA (occurrence: CA)
  Receive Date: 20190531
  Receipt Date: 20190613
  Transmission Date: 20190711
  Serious: Yes (Other)
  Sender: FDA-Public Use
  Company Number: CA-JNJFOC-20190234173

PATIENT
  Age: 76 Year
  Sex: Male
  Weight: 71 kg

DRUGS (4)
  1. REMICADE [Suspect]
     Active Substance: INFLIXIMAB
     Indication: CROHN^S DISEASE
     Route: 042
  2. REMICADE [Suspect]
     Active Substance: INFLIXIMAB
     Indication: CROHN^S DISEASE
     Route: 042
     Dates: start: 20190208
  3. REMICADE [Suspect]
     Active Substance: INFLIXIMAB
     Indication: CROHN^S DISEASE
     Route: 042
  4. REMICADE [Suspect]
     Active Substance: INFLIXIMAB
     Indication: CROHN^S DISEASE
     Route: 042

REACTIONS (13)
  - Depression [Not Recovered/Not Resolved]
  - Neoplasm skin [Unknown]
  - Pain in extremity [Unknown]
  - Rhinorrhoea [Unknown]
  - Product use issue [Unknown]
  - Hyperhidrosis [Unknown]
  - Oropharyngeal pain [Not Recovered/Not Resolved]
  - Diarrhoea [Unknown]
  - Pyrexia [Unknown]
  - Paraesthesia [Recovered/Resolved]
  - Dyspnoea [Unknown]
  - Heart rate decreased [Unknown]
  - Off label use [Unknown]

NARRATIVE: CASE EVENT DATE: 2019
